FAERS Safety Report 6504044-5 (Version None)
Quarter: 2009Q4

REPORT INFORMATION
  Report Type: 
  Country: None (occurrence: None)
  Receive Date: 20091215
  Receipt Date: 20091130
  Transmission Date: 20100525
  Serious: Yes (Death)
  Sender: FDA-Public Use
  Company Number: DE-1171517

PATIENT
  Age: 51 Year
  Sex: Female

DRUGS (1)
  1. FLUORESCITE [Suspect]
     Indication: DIABETIC RETINOPATHY
     Dosage: 5 ML 1X, 5 ML IV AT 1 ML/SEC INTRAVENOUS BOLUS
     Route: 040
     Dates: start: 20090519, end: 20090519

REACTIONS (1)
  - HYPOTENSION [None]
